FAERS Safety Report 5043301-9 (Version None)
Quarter: 2006Q2

REPORT INFORMATION
  Report Type: 
  Country: None (occurrence: None)
  Receive Date: 20060601
  Receipt Date: 20060301
  Transmission Date: 20061013
  Serious: No
  Sender: FDA-Public Use
  Company Number: 2006PV009492

PATIENT
  Age: 51 Year
  Sex: Female

DRUGS (7)
  1. BYETTA [Suspect]
     Indication: DRUG USE FOR UNKNOWN INDICATION
     Dosage: 10 MCG;SC
     Route: 058
     Dates: start: 20051228, end: 20060215
  2. METAGLIP [Concomitant]
  3. HYZAAR [Concomitant]
  4. VYTORIN [Concomitant]
  5. AVANDAMET [Concomitant]
  6. TARKA [Concomitant]
  7. ALDACTONE [Concomitant]

REACTIONS (5)
  - COLD SWEAT [None]
  - HYPERHIDROSIS [None]
  - PHOTOPSIA [None]
  - SYNCOPE [None]
  - VISUAL DISTURBANCE [None]
